FAERS Safety Report 18073655 (Version 4)
Quarter: 2020Q4

REPORT INFORMATION
  Report Type: Report from Study
  Country: NL (occurrence: NL)
  Receive Date: 20200727
  Receipt Date: 20201023
  Transmission Date: 20210113
  Serious: Yes (Other)
  Sender: FDA-Public Use
  Company Number: NL-MYLANLABS-2020M1066350

PATIENT
  Age: 67 Year
  Sex: Male
  Weight: 85 kg

DRUGS (20)
  1. ATORVASTATIN [Suspect]
     Active Substance: ATORVASTATIN
     Indication: PRODUCT USED FOR UNKNOWN INDICATION
     Dosage: UNK
  2. IBARIL [Concomitant]
     Dosage: UNK, QD, APPLY THINLY TO THE SKIN 1 X PER DAY, IF POSSIBLE, GRADUALLY REDUCE AND STOP
     Route: 061
  3. PERINDOPRIL TERT-BUTYLAMINE [Concomitant]
     Active Substance: PERINDOPRIL ERBUMINE
     Indication: HYPERTENSION
     Dosage: 2 MILLIGRAM, QD
     Route: 048
     Dates: start: 20171117
  4. ADALIMUMAB [Concomitant]
     Active Substance: ADALIMUMAB
     Indication: RHEUMATOID ARTHRITIS
     Dosage: 14 MG, QOW
     Route: 058
     Dates: start: 20170201, end: 20190514
  5. METHOTREXATE. [Concomitant]
     Active Substance: METHOTREXATE
     Dosage: 20 MILLIGRAM, QW
     Route: 048
  6. FLUTICASONE PROPIONATE AND SALMETEROL [Concomitant]
     Active Substance: FLUTICASONE PROPIONATE\SALMETEROL XINAFOATE
     Indication: CHRONIC OBSTRUCTIVE PULMONARY DISEASE
     Dosage: 50 UG, PRN
     Route: 055
     Dates: start: 20171010
  7. METHOTREXATE. [Concomitant]
     Active Substance: METHOTREXATE
     Indication: RHEUMATOID ARTHRITIS
     Dosage: 25 MG, QW
     Route: 048
     Dates: start: 20130313
  8. OMEPRAZOLE. [Concomitant]
     Active Substance: OMEPRAZOLE
     Indication: PROPHYLAXIS
     Dosage: 20 MILLIGRAM, QD
     Route: 048
     Dates: start: 20171010
  9. ACETYLSALICYLIC ACID [Concomitant]
     Active Substance: ASPIRIN
     Indication: PROPHYLAXIS
     Dosage: 80 MILLIGRAM, QD
     Route: 048
     Dates: start: 20171010
  10. SARILUMAB [Suspect]
     Active Substance: SARILUMAB
     Indication: RHEUMATOID ARTHRITIS
     Dosage: 200 MG, QOW
     Dates: start: 20190603, end: 20200625
  11. TIOTROPIUM [Concomitant]
     Active Substance: TIOTROPIUM
     Indication: CHRONIC OBSTRUCTIVE PULMONARY DISEASE
     Dosage: 18 MICROGRAM, QD
     Route: 055
     Dates: start: 20180606
  12. ATORVASTATIN [Concomitant]
     Active Substance: ATORVASTATIN
     Indication: PROPHYLAXIS
     Dosage: 40 MILLIGRAM, QD
     Route: 048
     Dates: start: 20171010, end: 20191031
  13. PERINDOPRIL TERT BUTYLAMINE [Concomitant]
     Active Substance: PERINDOPRIL ERBUMINE
     Indication: HYPERTENSION
     Dosage: 2 MILLIGRAM, QD
     Route: 048
     Dates: start: 20171117
  14. ATORVASTATIN [Concomitant]
     Active Substance: ATORVASTATIN
     Dosage: 20 MILLIGRAM, QD
     Route: 048
     Dates: start: 20191101, end: 20200325
  15. SULFASALAZINE. [Concomitant]
     Active Substance: SULFASALAZINE
     Indication: RHEUMATOID ARTHRITIS
     Dosage: 1000 MILLIGRAM, BID
     Route: 048
     Dates: start: 20130313, end: 20191129
  16. FOLIC ACID. [Concomitant]
     Active Substance: FOLIC ACID
     Indication: RHEUMATOID ARTHRITIS
     Dosage: 10 MILLIGRAM, QW, 5 MG, BIW
     Route: 048
     Dates: start: 20180607
  17. SARILUMAB [Suspect]
     Active Substance: SARILUMAB
     Dosage: 200 MG, QOW
     Dates: start: 2020
  18. DESOXIMETASON [Concomitant]
     Active Substance: DESOXIMETASONE
     Indication: CHEILITIS
     Dosage: UNK UNK, BID
     Route: 061
     Dates: start: 20190812, end: 20191107
  19. ROSUVAS [Concomitant]
     Indication: PROPHYLAXIS
     Dosage: 10 MILLIGRAM, QD
     Route: 048
     Dates: start: 20200326
  20. AUGMENTIN [Concomitant]
     Active Substance: AMOXICILLIN\CLAVULANATE POTASSIUM
     Indication: H1N1 INFLUENZA
     Dosage: UNK
     Dates: start: 202005

REACTIONS (9)
  - Hypercholesterolaemia [Recovered/Resolved]
  - Myalgia [Recovered/Resolved]
  - Tuberculosis [Not Recovered/Not Resolved]
  - Blood triglycerides increased [Not Recovered/Not Resolved]
  - Epistaxis [Unknown]
  - Cough [Not Recovered/Not Resolved]
  - Cheilitis [Recovered/Resolved]
  - Thrombocytopenia [Recovered/Resolved]
  - Stasis dermatitis [Recovered/Resolved]

NARRATIVE: CASE EVENT DATE: 20190702
